FAERS Safety Report 21360076 (Version 2)
Quarter: 2022Q4

REPORT INFORMATION
  Report Type: Spontaneous
  Country: JP (occurrence: JP)
  Receive Date: 20220921
  Receipt Date: 20221004
  Transmission Date: 20230113
  Serious: Yes (Hospitalization)
  Sender: FDA-Public Use
  Company Number: JP-MTPC-MTPC2022-0025266

PATIENT
  Age: 64 Year

DRUGS (3)
  1. REMICADE [Suspect]
     Active Substance: INFLIXIMAB
     Indication: Rheumatoid arthritis
     Route: 041
  2. IGURATIMOD [Concomitant]
     Active Substance: IGURATIMOD
     Dosage: 25 UNK
     Route: 065
  3. PREDNISOLONE [Concomitant]
     Active Substance: PREDNISOLONE
     Dosage: 4 UNK
     Route: 065

REACTIONS (3)
  - Decubitus ulcer [Recovered/Resolved]
  - Infection [Recovered/Resolved]
  - Off label use [Unknown]
